FAERS Safety Report 21466992 (Version 1)
Quarter: 2022Q4

REPORT INFORMATION
  Report Type: Spontaneous
  Country: US (occurrence: None)
  Receive Date: 20221017
  Receipt Date: 20221017
  Transmission Date: 20230113
  Serious: Yes (Other)
  Sender: FDA-Public Use
  Company Number: None

PATIENT
  Age: 70 Year
  Sex: Female
  Weight: 99.72 kg

DRUGS (9)
  1. POMALYST [Suspect]
     Active Substance: POMALIDOMIDE
     Indication: Plasma cell myeloma
     Dosage: OTHER FREQUENCY : 21 DAYS ON, 7 DAYS;?
     Route: 048
     Dates: start: 20220923
  2. SARCLISA [Concomitant]
     Active Substance: ISATUXIMAB-IRFC
  3. DEXAMETHASONE [Concomitant]
     Active Substance: DEXAMETHASONE
  4. ACYCLOVIR [Concomitant]
     Active Substance: ACYCLOVIR
  5. ASPIRIN [Concomitant]
     Active Substance: ASPIRIN
  6. ATORVASTATIN [Concomitant]
     Active Substance: ATORVASTATIN
  7. GLYBURIDE [Concomitant]
     Active Substance: GLYBURIDE
  8. HYDROCHLOROTHIAZIDE [Concomitant]
     Active Substance: HYDROCHLOROTHIAZIDE
  9. LOSARTAN [Concomitant]
     Active Substance: LOSARTAN

REACTIONS (1)
  - Neutropenia [None]

NARRATIVE: CASE EVENT DATE: 20221013
